FAERS Safety Report 19493197 (Version 1)
Quarter: 2021Q3

REPORT INFORMATION
  Report Type: Report from Study
  Country: None (occurrence: US)
  Receive Date: 20210705
  Receipt Date: 20210705
  Transmission Date: 20211014
  Serious: Yes (Hospitalization, Other)
  Sender: FDA-Public Use
  Company Number: US-ABBVIE-21K-163-3959428-00

PATIENT
  Age: 57 Year
  Sex: Female
  Weight: 69.01 kg

DRUGS (1)
  1. HUMIRA [Suspect]
     Active Substance: ADALIMUMAB
     Indication: RHEUMATOID ARTHRITIS
     Dosage: CITRATE FREE.
     Route: 058
     Dates: start: 201909, end: 202104

REACTIONS (8)
  - Cough [Recovered/Resolved]
  - Intervertebral disc degeneration [Not Recovered/Not Resolved]
  - Pain [Recovering/Resolving]
  - Sinus congestion [Recovered/Resolved]
  - Clavicle fracture [Recovering/Resolving]
  - Intentional product misuse [Unknown]
  - Fall [Recovered/Resolved]
  - Upper limb fracture [Recovering/Resolving]

NARRATIVE: CASE EVENT DATE: 201909
